FAERS Safety Report 8877719 (Version 1)
Quarter: 2012Q4

REPORT INFORMATION
  Report Type: Spontaneous
  Country: US (occurrence: None)
  Receive Date: 20121026
  Receipt Date: 20121026
  Transmission Date: 20130627
  Serious: No
  Sender: FDA-Public Use
  Company Number: TCI2012A06013

PATIENT
  Age: 78 Year
  Sex: Male

DRUGS (1)
  1. TAKEPRON [Suspect]
     Dates: start: 201101, end: 201101

REACTIONS (1)
  - Drug-induced liver injury [None]
